FAERS Safety Report 16876797 (Version 1)
Quarter: 2019Q4

REPORT INFORMATION
  Report Type: Spontaneous
  Country: IR (occurrence: IR)
  Receive Date: 20191002
  Receipt Date: 20191002
  Transmission Date: 20200122
  Serious: Yes (Hospitalization)
  Sender: FDA-Public Use
  Company Number: IR-BAUSCH-BL-2019-054655

PATIENT
  Age: 38 Year
  Sex: Male

DRUGS (1)
  1. PREDNISOLONE. [Suspect]
     Active Substance: PREDNISOLONE
     Indication: BEHCET^S SYNDROME
     Dosage: SINCE 4 YEARS AGO
     Route: 065

REACTIONS (2)
  - Nocardiosis [Recovered/Resolved]
  - Meningitis bacterial [Recovered/Resolved]
